FAERS Safety Report 24192439 (Version 7)
Quarter: 2024Q4

REPORT INFORMATION
  Report Type: Report from Study
  Country: CA (occurrence: CA)
  Receive Date: 20240809
  Receipt Date: 20241210
  Transmission Date: 20250114
  Serious: Yes (Other)
  Sender: UCB
  Company Number: CA-UCBSA-2024039961

PATIENT
  Sex: Male

DRUGS (6)
  1. BIMEKIZUMAB [Suspect]
     Active Substance: BIMEKIZUMAB
     Indication: Psoriatic arthropathy
     Dosage: 160 MILLIGRAM, EV 4 WEEKS
     Route: 058
     Dates: start: 20240730, end: 2024
  2. VIMOVO [Concomitant]
     Active Substance: ESOMEPRAZOLE MAGNESIUM\NAPROXEN
     Indication: Product used for unknown indication
     Dosage: UNK
  3. METHOTREXATE [Concomitant]
     Active Substance: METHOTREXATE
     Indication: Product used for unknown indication
     Dosage: UNK
  4. DOXYCYCLINE [Concomitant]
     Active Substance: DOXYCYCLINE
     Indication: Product used for unknown indication
     Dosage: UNK, AS NEEDED (PRN)
  5. VYVANSE [Concomitant]
     Active Substance: LISDEXAMFETAMINE DIMESYLATE
     Indication: Product used for unknown indication
     Dosage: UNK
  6. TADALAFIL [Concomitant]
     Active Substance: TADALAFIL
     Indication: Product used for unknown indication
     Dosage: UNK

REACTIONS (7)
  - Psoriatic arthropathy [Unknown]
  - Oropharyngeal pain [Unknown]
  - Nausea [Recovering/Resolving]
  - Therapeutic response shortened [Unknown]
  - Inappropriate schedule of product administration [Unknown]
  - Device malfunction [Unknown]
  - Incorrect dose administered [Unknown]

NARRATIVE: CASE EVENT DATE: 20240101
